FAERS Safety Report 20025773 (Version 2)
Quarter: 2021Q4

REPORT INFORMATION
  Report Type: Spontaneous
  Country: AU (occurrence: AU)
  Receive Date: 20211102
  Receipt Date: 20211201
  Transmission Date: 20220303
  Serious: Yes (Disabling, Other)
  Sender: FDA-Public Use
  Company Number: AU-NAPPMUNDI-GBR-2021-0092043

PATIENT
  Age: 59 Year
  Sex: Female

DRUGS (15)
  1. NORSPAN [Suspect]
     Active Substance: BUPRENORPHINE
     Indication: Pain
     Dosage: 25 MG, WEEKLY (20 MG + 5 MG STRENGTH)
     Route: 062
     Dates: start: 2021, end: 2021
  2. NORSPAN [Suspect]
     Active Substance: BUPRENORPHINE
     Dosage: 30 MG, WEEKLY (20MG + 10 MG STRENGTH)
     Route: 062
     Dates: start: 20211005, end: 20211005
  3. NORSPAN [Suspect]
     Active Substance: BUPRENORPHINE
     Dosage: 25 MG, WEEKLY (20MG + 5MG STRENGTH)
     Route: 062
     Dates: start: 2021, end: 2021
  4. NORSPAN [Suspect]
     Active Substance: BUPRENORPHINE
     Dosage: 20 MG, UNK
     Route: 062
     Dates: start: 202012
  5. NORSPAN [Suspect]
     Active Substance: BUPRENORPHINE
     Dosage: 40 MG, UNK
     Route: 062
  6. NORSPAN [Suspect]
     Active Substance: BUPRENORPHINE
     Dosage: 25 MG, WEEKLY (20MG + 5MG STRENGTH)
     Route: 062
     Dates: start: 20210913
  7. NORSPAN [Suspect]
     Active Substance: BUPRENORPHINE
     Dosage: 20 MG, UNK
     Route: 062
     Dates: start: 20191112, end: 20210913
  8. NORSPAN [Suspect]
     Active Substance: BUPRENORPHINE
     Dosage: 40 MG, UNK
     Route: 062
  9. NAPROSYN                           /00256201/ [Concomitant]
     Indication: Antiinflammatory therapy
     Dosage: UNK
  10. VENTOLIN [Concomitant]
     Active Substance: ALBUTEROL SULFATE
     Dosage: UNK, PRN
  11. TRAMADOL [Concomitant]
     Active Substance: TRAMADOL
     Dosage: UNK, PRN
  12. PALEXIA [Concomitant]
     Active Substance: TAPENTADOL HYDROCHLORIDE
     Dosage: UNK, PRN
  13. PROLIA [Concomitant]
     Active Substance: DENOSUMAB
     Indication: Osteoporosis
     Dosage: UNK
  14. RABEPRAZOLE SODIUM [Concomitant]
     Active Substance: RABEPRAZOLE SODIUM
     Indication: Gastrooesophageal reflux disease
     Dosage: UNK
  15. VALIUM [Concomitant]
     Active Substance: DIAZEPAM
     Dosage: UNK

REACTIONS (18)
  - Narcolepsy [Unknown]
  - Breakthrough pain [Not Recovered/Not Resolved]
  - Dermatitis contact [Unknown]
  - Rash pruritic [Unknown]
  - Expired product administered [Recovered/Resolved]
  - Product adhesion issue [Unknown]
  - Drug hypersensitivity [Unknown]
  - Application site erythema [Unknown]
  - Application site pain [Unknown]
  - Application site exfoliation [Unknown]
  - Rash erythematous [Unknown]
  - Application site rash [Unknown]
  - Headache [Unknown]
  - Product availability issue [Unknown]
  - Rash pruritic [Recovered/Resolved]
  - Expired product administered [Recovered/Resolved]
  - Application site rash [Recovered/Resolved]
  - Incorrect product dosage form administered [Unknown]

NARRATIVE: CASE EVENT DATE: 20210101
